FAERS Safety Report 13201552 (Version 1)
Quarter: 2017Q1

REPORT INFORMATION
  Report Type: Spontaneous
  Country: None (occurrence: HK)
  Receive Date: 20170209
  Receipt Date: 20170209
  Transmission Date: 20170428
  Serious: Yes (Hospitalization)
  Sender: FDA-Public Use
  Company Number: HK-ALKEM LABORATORIES LIMITED-HK-ALKEM-2017-00028

PATIENT
  Age: 51 Year
  Sex: Female
  Weight: 55 kg

DRUGS (1)
  1. METHADONE HYDROCHLORIDE. [Suspect]
     Active Substance: METHADONE HYDROCHLORIDE
     Indication: PRODUCT USED FOR UNKNOWN INDICATION
     Dosage: 250 ML, (18.2 MG/KG)

REACTIONS (8)
  - Intentional overdose [Unknown]
  - Hypoventilation [Unknown]
  - Miosis [Unknown]
  - Sinus tachycardia [Unknown]
  - Hypoglycaemia [Unknown]
  - Coma scale abnormal [Unknown]
  - Depressed level of consciousness [Unknown]
  - Hypertension [Unknown]
